FAERS Safety Report 18216916 (Version 1)
Quarter: 2020Q3

REPORT INFORMATION
  Report Type: Spontaneous
  Country: US (occurrence: US)
  Receive Date: 20200831
  Receipt Date: 20200831
  Transmission Date: 20201103
  Serious: Yes (Hospitalization)
  Sender: FDA-Public Use
  Company Number: None

PATIENT
  Age: 62 Year
  Sex: Male
  Weight: 93.89 kg

DRUGS (1)
  1. ROSUVASTATIN (ROSUVASTATIN CA 40MG TAB) [Suspect]
     Active Substance: ROSUVASTATIN
     Indication: HYPERLIPIDAEMIA
     Route: 048
     Dates: start: 20191004, end: 20200617

REACTIONS (6)
  - Liver injury [None]
  - Alanine aminotransferase increased [None]
  - Shock [None]
  - Overdose [None]
  - Aspartate aminotransferase increased [None]
  - Hypotension [None]

NARRATIVE: CASE EVENT DATE: 20200617
